FAERS Safety Report 7010101-X (Version None)
Quarter: 2010Q3

REPORT INFORMATION
  Report Type: 
  Country: None (occurrence: None)
  Receive Date: 20100923
  Receipt Date: 20100914
  Transmission Date: 20110219
  Serious: Yes (Life-Threatening)
  Sender: FDA-Public Use
  Company Number: FR-BAXTER-2010BH023792

PATIENT
  Age: 34 Year
  Sex: Female

DRUGS (5)
  1. CYCLOPHOSPHAMIDE [Suspect]
     Indication: PROGRESSIVE MULTIPLE SCLEROSIS
     Route: 042
     Dates: start: 20030115, end: 20040809
  2. CYCLOPHOSPHAMIDE [Suspect]
     Route: 042
     Dates: start: 20090215, end: 20091010
  3. MITOXANTRONE GENERIC [Suspect]
     Indication: PROGRESSIVE MULTIPLE SCLEROSIS
     Route: 048
     Dates: start: 20020211, end: 20020501
  4. MITOXANTRONE GENERIC [Suspect]
     Route: 048
     Dates: start: 19990101, end: 19990701
  5. BETAFERON [Suspect]
     Indication: PROGRESSIVE MULTIPLE SCLEROSIS
     Route: 048
     Dates: start: 19990701, end: 20020128

REACTIONS (1)
  - CONGESTIVE CARDIOMYOPATHY [None]
